FAERS Safety Report 9519484 (Version 1)
Quarter: 2013Q1

REPORT INFORMATION
  Report Type: Spontaneous
  Country: US (occurrence: None)
  Receive Date: 20130305
  Receipt Date: 20130305
  Transmission Date: 20140127
  Serious: Yes (Hospitalization, Other)
  Sender: FDA-Public Use
  Company Number: 163-21880-12020581

PATIENT
  Age: 57 Year
  Sex: Female
  Weight: 86.2 kg

DRUGS (1)
  1. REVLIMID (LENALIDOMIDE) (CAPSULES) [Suspect]
     Indication: PLASMA CELL MYELOMA
     Dosage: 25 MG, 1 IN 1 D, PO
     Route: 048
     Dates: start: 201007

REACTIONS (4)
  - Abdominal pain [None]
  - Diarrhoea [None]
  - Malaise [None]
  - Abdominal discomfort [None]
